FAERS Safety Report 8016587-6 (Version None)
Quarter: 2011Q4

REPORT INFORMATION
  Report Type: 
  Country: None (occurrence: None)
  Receive Date: 20111230
  Receipt Date: 20111226
  Transmission Date: 20120403
  Serious: Yes (Life-Threatening, Hospitalization, Other)
  Sender: FDA-Public Use
  Company Number: JP-ASTRAZENECA-2011SE69948

PATIENT
  Age: 83 Year
  Sex: Female
  Weight: 40 kg

DRUGS (17)
  1. DEPAS [Concomitant]
     Indication: INSOMNIA
     Route: 048
     Dates: start: 20051111
  2. FAMOTIDINE [Concomitant]
     Indication: GASTROOESOPHAGEAL REFLUX DISEASE
     Route: 048
     Dates: start: 20110902, end: 20110929
  3. AMLODIPINE [Concomitant]
     Indication: HYPERTENSION
     Route: 048
     Dates: start: 20051111
  4. TORSEMIDE [Concomitant]
     Indication: CARDIAC FAILURE CHRONIC
     Route: 048
     Dates: start: 20110816
  5. VIBRAMYCIN [Concomitant]
     Indication: SUBCUTANEOUS ABSCESS
     Route: 048
     Dates: start: 20111018, end: 20111028
  6. IRESSA [Suspect]
     Indication: LUNG ADENOCARCINOMA
     Route: 048
     Dates: start: 20110811, end: 20110906
  7. DIOVAN [Concomitant]
     Indication: HYPERTENSION
     Route: 048
     Dates: start: 20051118
  8. HIRUDOID [Concomitant]
     Indication: DRY SKIN
     Dosage: TWO TIMES A DAY, DOSE UNKNOWN, AS REQUIRED
     Route: 003
     Dates: start: 20111015
  9. TAIPEMIN [Concomitant]
     Indication: DIARRHOEA
     Route: 048
     Dates: start: 20110906, end: 20110914
  10. LOCOID [Concomitant]
     Indication: DERMATITIS ACNEIFORM
     Dosage: TWO TIMES A DAY, DOSE UNKNOWN, AS REQUIRED
     Route: 003
     Dates: start: 20111007
  11. OMEPRAZOLE [Concomitant]
     Indication: GASTROOESOPHAGEAL REFLUX DISEASE
     Route: 048
     Dates: start: 20110610, end: 20110809
  12. GENTAMICIN SULFATE [Concomitant]
     Indication: SUBCUTANEOUS ABSCESS
     Dosage: TWO TIMES A DAY, DOSE UNKNOWN, AS REQUIRED
     Route: 003
     Dates: start: 20111014
  13. CODEINE PHOSPHATE HYDRATE [Concomitant]
     Indication: BRONCHITIS CHRONIC
     Route: 048
     Dates: start: 20071124
  14. MEIACT [Concomitant]
     Indication: PNEUMONIA
     Route: 048
     Dates: start: 20111202, end: 20111213
  15. LANIRAPID [Concomitant]
     Indication: CARDIAC FAILURE CHRONIC
     Route: 048
     Dates: start: 20110301
  16. SELBEX [Concomitant]
     Indication: GASTRIC ULCER
     Route: 048
     Dates: start: 20110905
  17. SAWATENE [Concomitant]
     Indication: PNEUMONIA
     Route: 048
     Dates: start: 20111202, end: 20111213

REACTIONS (7)
  - DERMATITIS ACNEIFORM [None]
  - SKIN ULCER [None]
  - ONYCHOMADESIS [None]
  - GASTRIC ULCER HAEMORRHAGE [None]
  - FACE OEDEMA [None]
  - OEDEMA PERIPHERAL [None]
  - DIARRHOEA [None]
